FAERS Safety Report 24292819 (Version 1)
Quarter: 2024Q3

REPORT INFORMATION
  Report Type: Spontaneous
  Country: US (occurrence: None)
  Receive Date: 20240906
  Receipt Date: 20240906
  Transmission Date: 20241016
  Serious: No
  Sender: DOMPE FARMACEUTICI
  Company Number: US-FARMAPROD-202308-202310-3099

PATIENT
  Sex: Female
  Weight: 95.8 kg

DRUGS (17)
  1. OXERVATE [Suspect]
     Active Substance: CENEGERMIN-BKBJ
     Indication: Neurotrophic keratopathy
     Route: 047
     Dates: start: 20231009
  2. TYRVAYA [Concomitant]
     Active Substance: VARENICLINE TARTRATE
     Dosage: 0.03/SPRAY.
  3. ALBUTEROL SULFATE [Concomitant]
     Active Substance: ALBUTEROL SULFATE
     Dosage: HYDROFLUOROALKANE, AEROSOL WITH ADAPTER.
  4. HUMIRA [Concomitant]
     Active Substance: ADALIMUMAB
     Dosage: 40MG/0.4ML PEN INJECTOR KIT.
  5. GABAPENTIN [Concomitant]
     Active Substance: GABAPENTIN
  6. EMGALITY [Concomitant]
     Active Substance: GALCANEZUMAB-GNLM
     Dosage: PEN INJECTOR.
  7. DEXAMETHASONE [Concomitant]
     Active Substance: DEXAMETHASONE
  8. AMOXICILLIN [Concomitant]
     Active Substance: AMOXICILLIN
  9. DIAZEPAM [Concomitant]
     Active Substance: DIAZEPAM
  10. TYMLOS [Concomitant]
     Active Substance: ABALOPARATIDE
     Dosage: PEN INJECTOR.
  11. BENZONATATE [Concomitant]
     Active Substance: BENZONATATE
  12. VITAMIN D2 [Concomitant]
     Active Substance: ERGOCALCIFEROL
  13. AMLODIPINE BESYLATE [Concomitant]
     Active Substance: AMLODIPINE BESYLATE
  14. DULOXETINE HYDROCHLORIDE [Concomitant]
     Active Substance: DULOXETINE HYDROCHLORIDE
  15. CETIRIZINE HCL [Concomitant]
     Active Substance: CETIRIZINE HYDROCHLORIDE
  16. BETAMETHASONE\CLOTRIMAZOLE [Concomitant]
     Active Substance: BETAMETHASONE\CLOTRIMAZOLE
  17. IVIZIA [Concomitant]
     Active Substance: POVIDONE

REACTIONS (1)
  - Intentional product misuse [Unknown]
